FAERS Safety Report 16107171 (Version 2)
Quarter: 2019Q2

REPORT INFORMATION
  Report Type: Spontaneous
  Country: US (occurrence: US)
  Receive Date: 20190322
  Receipt Date: 20190429
  Transmission Date: 20190711
  Serious: No
  Sender: FDA-Public Use
  Company Number: US-ASTRAZENECA-2018SE74127

PATIENT
  Sex: Male

DRUGS (2)
  1. TUDORZA [Suspect]
     Active Substance: ACLIDINIUM BROMIDE
     Indication: EMPHYSEMA
     Route: 055
  2. SYMBICORT [Suspect]
     Active Substance: BUDESONIDE\FORMOTEROL FUMARATE DIHYDRATE
     Dosage: UNKNOWN UNKNOWN
     Route: 055

REACTIONS (8)
  - Intentional product misuse [Unknown]
  - Product dose omission [Unknown]
  - Hunger [Unknown]
  - Drug ineffective [Unknown]
  - Emphysema [Unknown]
  - Product physical issue [Unknown]
  - Fatigue [Unknown]
  - Device malfunction [Unknown]
